FAERS Safety Report 6133648-7 (Version None)
Quarter: 2009Q1

REPORT INFORMATION
  Report Type: 
  Country: None (occurrence: None)
  Receive Date: 20090326
  Receipt Date: 20090320
  Transmission Date: 20090719
  Serious: Yes (Hospitalization)
  Sender: FDA-Public Use
  Company Number: A0754674A

PATIENT
  Sex: Male
  Weight: 86.4 kg

DRUGS (2)
  1. AVANDIA [Suspect]
     Indication: TYPE 2 DIABETES MELLITUS
     Dosage: 8MG PER DAY
     Route: 048
     Dates: start: 19990101
  2. GLUCOPHAGE [Concomitant]
     Dates: start: 19930101, end: 20060601

REACTIONS (3)
  - ANXIETY [None]
  - ARTERIAL DISORDER [None]
  - INJURY [None]
